FAERS Safety Report 26145853 (Version 1)
Quarter: 2025Q4

REPORT INFORMATION
  Report Type: Spontaneous
  Country: US (occurrence: US)
  Receive Date: 20251211
  Receipt Date: 20251211
  Transmission Date: 20260118
  Serious: No
  Sender: SANOFI AVENTIS
  Company Number: US-SA-2025SA366032

PATIENT
  Age: 5 Year
  Sex: Female

DRUGS (2)
  1. DUPIXENT [Suspect]
     Active Substance: DUPILUMAB
     Indication: Eczema
     Dosage: 600.000MG 1X
     Route: 058
     Dates: start: 20251015, end: 20251015
  2. DUPIXENT [Suspect]
     Active Substance: DUPILUMAB
     Dosage: 300 MG Q4W
     Route: 058
     Dates: start: 202510

REACTIONS (2)
  - Eczema [Unknown]
  - Rash [Unknown]

NARRATIVE: CASE EVENT DATE: 20251101
